FAERS Safety Report 10648136 (Version 2)
Quarter: 2015Q1

REPORT INFORMATION
  Report Type: Report from Study
  Country: DE (occurrence: DE)
  Receive Date: 20141212
  Receipt Date: 20150127
  Transmission Date: 20150720
  Serious: Yes (Death)
  Sender: FDA-Public Use
  Company Number: DE-BEH-2014047039

PATIENT
  Age: 77 Year
  Sex: Female
  Weight: 57 kg

DRUGS (10)
  1. CALCIUM [Concomitant]
     Active Substance: CALCIUM
  2. PRIVIGEN [Suspect]
     Active Substance: HUMAN IMMUNOGLOBULIN G
     Dosage: INFUSION RATE MIN. 24/MAX. 130 ML/MIN
     Route: 042
     Dates: start: 20141006, end: 20141006
  3. PRIVIGEN [Suspect]
     Active Substance: HUMAN IMMUNOGLOBULIN G
     Dosage: INFUSION RATE MIN. 24/MAX. 130 ML/MIN
     Route: 042
     Dates: start: 20141006, end: 20141006
  4. OMEPRAZOLE. [Concomitant]
     Active Substance: OMEPRAZOLE
  5. ZOMETA [Concomitant]
     Active Substance: ZOLEDRONIC ACID
  6. CHEMOTHERAPEUTICS NOS [Concomitant]
     Active Substance: UNSPECIFIED INGREDIENT
  7. PRIVIGEN [Suspect]
     Active Substance: HUMAN IMMUNOGLOBULIN G
     Dosage: INFUSION RATE MIN. 24/MAX. 130 ML/MIN
     Route: 042
     Dates: start: 20141007, end: 20141007
  8. PRIVIGEN [Suspect]
     Active Substance: HUMAN IMMUNOGLOBULIN G
     Dosage: INFUSION RATE MIN. 24/MAX. 130 ML/MIN
     Route: 042
     Dates: start: 20141008, end: 20141008
  9. PRIVIGEN [Suspect]
     Active Substance: HUMAN IMMUNOGLOBULIN G
     Indication: MULTIFOCAL MOTOR NEUROPATHY
     Dosage: INFUSION RATE MIN. 24/MAX. 130 ML/MIN
     Route: 042
     Dates: start: 20141007, end: 20141007
  10. PRIVIGEN [Suspect]
     Active Substance: HUMAN IMMUNOGLOBULIN G
     Dosage: INFUSION RATE MIN. 24/MAX. 130 ML/MIN
     Route: 042
     Dates: start: 20141008, end: 20141008

REACTIONS (1)
  - General physical health deterioration [Fatal]
